FAERS Safety Report 7645249-X (Version None)
Quarter: 2011Q3

REPORT INFORMATION
  Report Type: 
  Country: None (occurrence: None)
  Receive Date: 20110729
  Receipt Date: 20110722
  Transmission Date: 20111222
  Serious: Yes (Other)
  Sender: FDA-Public Use
  Company Number: ES-MERCK-1107ESP00003

PATIENT
  Age: 65 Year
  Sex: Female

DRUGS (10)
  1. CANCIDAS [Suspect]
     Route: 042
  2. CANCIDAS [Suspect]
     Indication: CANDIDIASIS
     Route: 042
  3. CANCIDAS [Suspect]
     Indication: SYSTEMIC CANDIDA
     Route: 042
  4. ISONIAZID AND PYRAZINAMIDE AND RIFAMPIN [Suspect]
     Indication: LYMPHADENITIS
     Route: 048
  5. CANCIDAS [Suspect]
     Route: 042
  6. CYCLOSPORINE [Concomitant]
     Route: 065
  7. PREDNISONE [Concomitant]
     Route: 065
  8. ANTIMICROBIAL (UNSPECIFIED) [Concomitant]
     Indication: EVIDENCE BASED TREATMENT
     Route: 065
  9. ISONIAZID AND PYRAZINAMIDE AND RIFAMPIN [Suspect]
     Indication: TUBERCULOSIS
     Route: 048
  10. FLUCONAZOLE [Concomitant]
     Indication: EVIDENCE BASED TREATMENT
     Route: 065

REACTIONS (5)
  - SYSTEMIC CANDIDA [None]
  - DRUG INTERACTION [None]
  - TREATMENT FAILURE [None]
  - UNDERDOSE [None]
  - SEPSIS [None]
